FAERS Safety Report 8126085-7 (Version None)
Quarter: 2012Q1

REPORT INFORMATION
  Report Type: 
  Country: None (occurrence: None)
  Receive Date: 20120209
  Receipt Date: 20120202
  Transmission Date: 20120608
  Serious: Yes (Other)
  Sender: FDA-Public Use
  Company Number: PHHY2012JP009685

PATIENT
  Age: 81 Year
  Sex: Male

DRUGS (3)
  1. ALDACTONE [Concomitant]
     Dosage: 25 MG
     Route: 048
  2. RASILEZ [Suspect]
     Indication: CARDIAC FAILURE CHRONIC
     Dosage: 150 MG, QD
     Route: 048
     Dates: start: 20111226, end: 20120122
  3. TANATRIL [Concomitant]
     Dosage: 5 MG
     Route: 048

REACTIONS (6)
  - BLOOD CREATININE INCREASED [None]
  - LOSS OF CONSCIOUSNESS [None]
  - BLOOD UREA INCREASED [None]
  - CARDIAC ARREST [None]
  - HYPERKALAEMIA [None]
  - BRADYCARDIA [None]
